FAERS Safety Report 23806640 (Version 1)
Quarter: 2024Q2

REPORT INFORMATION
  Report Type: Spontaneous
  Country: RU (occurrence: None)
  Receive Date: 20240502
  Receipt Date: 20240502
  Transmission Date: 20240715
  Serious: Yes (Other)
  Sender: FDA-Public Use
  Company Number: RU-ROCHE-3553234

PATIENT
  Age: 56 Year
  Sex: Male

DRUGS (1)
  1. ENTRECTINIB [Suspect]
     Active Substance: ENTRECTINIB
     Indication: Neoplasm
     Route: 048
     Dates: start: 202309, end: 202402

REACTIONS (9)
  - Pathological fracture [Unknown]
  - Spinal cord compression [Unknown]
  - Paraparesis [Unknown]
  - Ascites [Unknown]
  - Urinary retention [Unknown]
  - Hydronephrosis [Unknown]
  - Anaemia [Unknown]
  - Hepatosplenomegaly [Unknown]
  - Hydroureter [Unknown]

NARRATIVE: CASE EVENT DATE: 20240201
